FAERS Safety Report 19465777 (Version 2)
Quarter: 2021Q2

REPORT INFORMATION
  Report Type: Spontaneous
  Country: FR (occurrence: FR)
  Receive Date: 20210626
  Receipt Date: 20210626
  Transmission Date: 20210717
  Serious: Yes (Death)
  Sender: FDA-Public Use
  Company Number: FR-TEVA-2021-FR-1925090

PATIENT
  Age: 58 Year
  Sex: Female

DRUGS (10)
  1. MIDAZOLAM. [Concomitant]
     Active Substance: MIDAZOLAM
     Dosage: UNKNOWN; THERAPY END DATE: ASKU
     Route: 042
     Dates: start: 20210412
  2. INIPOMP [Concomitant]
     Active Substance: PANTOPRAZOLE SODIUM
     Dosage: UNIT DOSE: 1 DF; THERAPY START AND END DATE: ASKU
     Route: 048
  3. NAROPEINE [Suspect]
     Active Substance: ROPIVACAINE HYDROCHLORIDE
     Indication: ANAESTHESIA
     Dosage: 20MG
     Route: 037
     Dates: start: 20210412, end: 20210412
  4. SUFENTANIL [Concomitant]
     Active Substance: SUFENTANIL
     Dosage: UNKNOWN
     Route: 042
     Dates: start: 20210412, end: 20210412
  5. DEXAMETHASONE. [Concomitant]
     Active Substance: DEXAMETHASONE
     Dosage: UNKNOWN
     Route: 042
     Dates: start: 20210412, end: 20210412
  6. EXACYL 0,5 G/5 ML I.V., SOLUTION INJECTABLE [Suspect]
     Active Substance: TRANEXAMIC ACID
     Indication: HAEMORRHAGE
     Dosage: 1 DF
     Route: 065
     Dates: start: 20210412, end: 20210412
  7. BREXIN 20 MG, COMPRIME SECABLE [Concomitant]
     Active Substance: PIROXICAM BETADEX
     Dosage: THERAPY START AND END DATE: ASKU; UNIT DOSE: 1DF; SCORED TABLET
     Route: 048
  8. PAROXETINE. [Suspect]
     Active Substance: PAROXETINE
     Indication: DEPRESSION
     Dosage: 10MG; THERAPY START AND END DATE: ASKU
     Route: 048
  9. CEFAZOLINE [Suspect]
     Active Substance: CEFAZOLIN SODIUM
     Indication: ANTIBIOTIC PROPHYLAXIS
     Dosage: 2G
     Route: 042
     Dates: start: 20210412, end: 20210412
  10. DIPRIVAN [Concomitant]
     Active Substance: PROPOFOL
     Dosage: UNKNOWN
     Route: 042
     Dates: start: 20210412

REACTIONS (1)
  - Tonic clonic movements [Fatal]

NARRATIVE: CASE EVENT DATE: 20210412
